FAERS Safety Report 23070362 (Version 1)
Quarter: 2023Q4

REPORT INFORMATION
  Report Type: Spontaneous
  Country: US (occurrence: US)
  Receive Date: 20231016
  Receipt Date: 20231016
  Transmission Date: 20240109
  Serious: Yes (Hospitalization, Other)
  Sender: FDA-Public Use
  Company Number: US-PFIZER INC-PV202300168898

PATIENT
  Age: 15 Year
  Sex: Male
  Weight: 85 kg

DRUGS (1)
  1. PAXLOVID [Suspect]
     Active Substance: NIRMATRELVIR\RITONAVIR
     Indication: COVID-19 treatment
     Dosage: UNK
     Dates: start: 2023, end: 2023

REACTIONS (8)
  - Enterovirus infection [Unknown]
  - Hypoxia [Recovering/Resolving]
  - Pneumonia fungal [Unknown]
  - Pleural effusion [Unknown]
  - Lung consolidation [Unknown]
  - Rhinovirus infection [Unknown]
  - Hypoaesthesia [Unknown]
  - Therapeutic product effect incomplete [Unknown]

NARRATIVE: CASE EVENT DATE: 20231006
